FAERS Safety Report 6275792-X (Version None)
Quarter: 2009Q3

REPORT INFORMATION
  Report Type: 
  Country: None (occurrence: None)
  Receive Date: 20090721
  Receipt Date: 20090714
  Transmission Date: 20100115
  Serious: Yes (Other)
  Sender: FDA-Public Use
  Company Number: US-JNJCH-2009019309

PATIENT
  Age: 56 Year
  Sex: Female
  Weight: 68 kg

DRUGS (4)
  1. PURELL ORIGINAL [Suspect]
     Indication: ANTIBIOTIC PROPHYLAXIS
     Dosage: TEXT:A ^DIME^ 3 TIMES A DAY
     Route: 061
  2. METOPROLOL SUCCINATE [Concomitant]
     Indication: HYPERTENSION
     Dosage: TEXT:100MG TWICE A DAY
     Route: 048
  3. ZOLOFT [Concomitant]
     Indication: ANTIDEPRESSANT THERAPY
     Dosage: TEXT:100MG 1 X A DAY
     Route: 048
  4. LISINOPRIL [Concomitant]
     Indication: BLOOD PRESSURE
     Dosage: TEXT:25MG 2 X A DAY
     Route: 048

REACTIONS (2)
  - ACCIDENTAL EXPOSURE [None]
  - RASH [None]
